FAERS Safety Report 9928150 (Version 2)
Quarter: 2014Q1

REPORT INFORMATION
  Report Type: Spontaneous
  Country: CN (occurrence: None)
  Receive Date: 20140224
  Receipt Date: 20140228
  Transmission Date: 20141002
  Serious: Yes (Hospitalization)
  Sender: FDA-Public Use
  Company Number: KAD201402-000208

PATIENT
  Age: 41 Year
  Sex: Female

DRUGS (2)
  1. RIBAVIRIN [Suspect]
     Indication: CHRONIC HEPATITIS C
  2. PEG-IFN-ALFA-2A [Suspect]
     Indication: CHRONIC HEPATITIS C

REACTIONS (4)
  - Congestive cardiomyopathy [None]
  - Hypothyroidism [None]
  - Pulmonary congestion [None]
  - Ejection fraction decreased [None]
